FAERS Safety Report 6659576-6 (Version None)
Quarter: 2010Q1

REPORT INFORMATION
  Report Type: 
  Country: None (occurrence: None)
  Receive Date: 20100330
  Receipt Date: 20091022
  Transmission Date: 20100710
  Serious: Yes (Hospitalization)
  Sender: FDA-Public Use
  Company Number: PHHY2009TW61020

PATIENT

DRUGS (1)
  1. EXJADE [Suspect]

REACTIONS (6)
  - CARDIAC HYPERTROPHY [None]
  - DIARRHOEA [None]
  - NEPHROPATHY [None]
  - OEDEMA [None]
  - PLEURAL EFFUSION [None]
  - RASH [None]
